FAERS Safety Report 4933183-5 (Version None)
Quarter: 2006Q1

REPORT INFORMATION
  Report Type: 
  Country: None (occurrence: None)
  Receive Date: 20060306
  Receipt Date: 20050616
  Transmission Date: 20060701
  Serious: Yes (Hospitalization, Other)
  Sender: FDA-Public Use
  Company Number: US-MERCK-0506USA02703

PATIENT
  Age: 59 Year
  Sex: Male
  Weight: 76 kg

DRUGS (3)
  1. VIOXX [Suspect]
     Indication: RHEUMATOID ARTHRITIS
     Route: 048
     Dates: start: 20010101, end: 20030201
  2. VIOXX [Suspect]
     Route: 048
     Dates: start: 20040801, end: 20040101
  3. VIOXX [Suspect]
     Route: 048
     Dates: start: 20000101, end: 20040101

REACTIONS (6)
  - ANGINA PECTORIS [None]
  - CHEST PAIN [None]
  - COLON INJURY [None]
  - DIVERTICULITIS [None]
  - HERNIA [None]
  - PRESCRIBED OVERDOSE [None]
